FAERS Safety Report 22623605 (Version 1)
Quarter: 2023Q2

REPORT INFORMATION
  Report Type: Spontaneous
  Country: US (occurrence: None)
  Receive Date: 20230621
  Receipt Date: 20230621
  Transmission Date: 20230721
  Serious: No
  Sender: FDA-Public Use
  Company Number: 2023A139992

PATIENT
  Age: 24177 Day
  Sex: Female
  Weight: 106.6 kg

DRUGS (1)
  1. FARXIGA [Suspect]
     Active Substance: DAPAGLIFLOZIN PROPANEDIOL
     Indication: Type 2 diabetes mellitus
     Route: 048
     Dates: start: 20230301, end: 20230513

REACTIONS (5)
  - Ketonuria [Recovered/Resolved]
  - Furuncle [Recovered/Resolved]
  - Furuncle [Unknown]
  - Fungal infection [Unknown]
  - White blood cell count increased [Recovered/Resolved]

NARRATIVE: CASE EVENT DATE: 20230410
